FAERS Safety Report 21373648 (Version 1)
Quarter: 2022Q3

REPORT INFORMATION
  Report Type: Spontaneous
  Country: DE (occurrence: DE)
  Receive Date: 20220926
  Receipt Date: 20220926
  Transmission Date: 20221027
  Serious: Yes (Hospitalization)
  Sender: FDA-Public Use
  Company Number: DE-ADRED-07839-01

PATIENT
  Age: 53 Year
  Sex: Male
  Weight: 98 kg

DRUGS (7)
  1. PLEGRIDY [Suspect]
     Active Substance: PEGINTERFERON BETA-1A
     Indication: Product used for unknown indication
     Dosage: 125 MICROGRAM, 0-0-1-0
     Route: 050
  2. METOPROLOL [Concomitant]
     Active Substance: METOPROLOL
     Indication: Product used for unknown indication
     Dosage: 47.5 MG, 1-0-0-0
     Route: 050
  3. Rosuvastatin-ratiopharm 20mg [Concomitant]
     Indication: Product used for unknown indication
     Dosage: 20 MG, 0-0-1-0
     Route: 050
  4. Brilique 90mg [Concomitant]
     Indication: Product used for unknown indication
     Dosage: 90 MG, 1-0-1-0
     Route: 050
  5. PANTOPRAZOLE [Concomitant]
     Active Substance: PANTOPRAZOLE
     Indication: Product used for unknown indication
     Dosage: 40 MG, 1-0-0-0
     Route: 050
  6. ASS AL 100 TAH [Concomitant]
     Indication: Product used for unknown indication
     Dosage: 100 MG, 0-1-0-0
     Route: 050
  7. RAMIPRIL [Concomitant]
     Active Substance: RAMIPRIL
     Indication: Product used for unknown indication
     Dosage: 2.5 MG, 1-0-0-0
     Route: 050

REACTIONS (5)
  - Cold sweat [Unknown]
  - Angina pectoris [Unknown]
  - Contraindicated product administered [Unknown]
  - Chest discomfort [Unknown]
  - Dyspnoea [Unknown]
